FAERS Safety Report 13360426 (Version 2)
Quarter: 2017Q1

REPORT INFORMATION
  Report Type: Spontaneous
  Country: AU (occurrence: AU)
  Receive Date: 20170322
  Receipt Date: 20170324
  Transmission Date: 20170429
  Serious: Yes (Other)
  Sender: FDA-Public Use
  Company Number: AU-ALLERGAN-1710610US

PATIENT
  Age: 43 Year
  Sex: Female

DRUGS (1)
  1. ESCITALOPRAM OXALATE - BP [Suspect]
     Active Substance: ESCITALOPRAM OXALATE
     Indication: PRODUCT USED FOR UNKNOWN INDICATION
     Dosage: UNK
     Route: 065

REACTIONS (5)
  - Coordination abnormal [Unknown]
  - Depressed level of consciousness [Unknown]
  - Disturbance in attention [Unknown]
  - Feeling abnormal [Unknown]
  - Memory impairment [Unknown]
